FAERS Safety Report 9332564 (Version 4)
Quarter: 2013Q3

REPORT INFORMATION
  Report Type: Spontaneous
  Country: SE (occurrence: SE)
  Receive Date: 20130606
  Receipt Date: 20130701
  Transmission Date: 20140515
  Serious: Yes (Hospitalization, Other)
  Sender: FDA-Public Use
  Company Number: SE-ROCHE-1231540

PATIENT
  Age: 64 Year
  Sex: Female

DRUGS (6)
  1. MABTHERA [Suspect]
     Indication: GRANULOMATOSIS WITH POLYANGIITIS
     Route: 042
     Dates: start: 20130520, end: 20130520
  2. PREDNISOLON [Concomitant]
  3. SENDOXAN [Concomitant]
     Indication: GRANULOMATOSIS WITH POLYANGIITIS
     Route: 042
     Dates: start: 20130521, end: 20130521
  4. ALENDRONAT [Concomitant]
     Indication: OSTEOPOROSIS
     Route: 048
  5. CALCICHEW D3 [Concomitant]
     Indication: OSTEOPOROSIS
     Dosage: 500/400 IU
     Route: 048
  6. BACTRIM [Concomitant]
     Route: 048

REACTIONS (1)
  - Ischaemic stroke [Recovered/Resolved]
